FAERS Safety Report 20680998 (Version 1)
Quarter: 2022Q2

REPORT INFORMATION
  Report Type: Spontaneous
  Country: SG (occurrence: SG)
  Receive Date: 20220406
  Receipt Date: 20220406
  Transmission Date: 20220721
  Serious: No
  Sender: FDA-Public Use
  Company Number: SG-LUPIN PHARMACEUTICALS INC.-2022-05023

PATIENT
  Age: 2 Year
  Sex: Female

DRUGS (4)
  1. MORPHINE [Suspect]
     Active Substance: MORPHINE
     Indication: Analgesic therapy
     Dosage: UNK
     Route: 065
     Dates: start: 2017
  2. DEXMEDETOMIDINE [Suspect]
     Active Substance: DEXMEDETOMIDINE
     Indication: Induction of anaesthesia
     Dosage: UNK
     Route: 042
     Dates: start: 2017
  3. SEVOFLURANE [Suspect]
     Active Substance: SEVOFLURANE
     Indication: Induction of anaesthesia
     Dosage: UNK
     Dates: start: 2017
  4. KETAMINE [Suspect]
     Active Substance: KETAMINE
     Indication: Sedation
     Dosage: UNK
     Route: 065
     Dates: start: 2017

REACTIONS (1)
  - Oxygen saturation decreased [Unknown]

NARRATIVE: CASE EVENT DATE: 20170101
